FAERS Safety Report 5317327-1 (Version None)
Quarter: 2007Q2

REPORT INFORMATION
  Report Type: 
  Country: None (occurrence: None)
  Receive Date: 20070504
  Receipt Date: 20070424
  Transmission Date: 20071010
  Serious: Yes (Other)
  Sender: FDA-Public Use
  Company Number: US-PFIZER INC-2007034134

PATIENT
  Sex: Female

DRUGS (4)
  1. DILANTIN [Suspect]
     Indication: TRIGEMINAL NEURALGIA
  2. NORVASC [Concomitant]
  3. ATENOLOL [Concomitant]
  4. PREMARIN [Concomitant]

REACTIONS (6)
  - BLISTER [None]
  - LIVER FUNCTION TEST ABNORMAL [None]
  - PRURITUS [None]
  - RASH [None]
  - URTICARIA [None]
  - WEIGHT DECREASED [None]
